FAERS Safety Report 21350209 (Version 1)
Quarter: 2022Q3

REPORT INFORMATION
  Report Type: Spontaneous
  Country: FR (occurrence: FR)
  Receive Date: 20220919
  Receipt Date: 20220919
  Transmission Date: 20221027
  Serious: Yes (Hospitalization)
  Sender: FDA-Public Use
  Company Number: None

PATIENT
  Age: 13 Year
  Sex: Female

DRUGS (4)
  1. TRAMADOL HYDROCHLORIDE [Suspect]
     Active Substance: TRAMADOL HYDROCHLORIDE
     Indication: Intentional overdose
     Dosage: 187.5 MG (5 CP 37.5 MG)
     Route: 048
     Dates: start: 20220321, end: 20220321
  2. ACETAMINOPHEN [Suspect]
     Active Substance: ACETAMINOPHEN
     Indication: Intentional overdose
     Dosage: 1625 MG (5 CP 325 MG)
     Route: 048
     Dates: start: 20220321, end: 20220321
  3. ADVIL [Concomitant]
     Active Substance: IBUPROFEN
     Indication: Intentional overdose
     Dosage: 1 DOSAGE FORM
     Route: 048
     Dates: start: 20220324, end: 20220324
  4. PHLOROGLUCINOL [Concomitant]
     Active Substance: PHLOROGLUCINOL
     Indication: Intentional overdose
     Dosage: 8 DOSAGE FORM
     Route: 048
     Dates: start: 20220324, end: 20220324

REACTIONS (3)
  - Poisoning deliberate [Recovered/Resolved]
  - Abdominal pain [Recovered/Resolved]
  - Vertigo [Recovered/Resolved]

NARRATIVE: CASE EVENT DATE: 20220324
